FAERS Safety Report 18147260 (Version 1)
Quarter: 2020Q3

REPORT INFORMATION
  Report Type: Spontaneous
  Country: ES (occurrence: ES)
  Receive Date: 20200814
  Receipt Date: 20200814
  Transmission Date: 20201103
  Serious: Yes (Other)
  Sender: FDA-Public Use
  Company Number: ES-AUROBINDO-AUR-APL-2020-038572

PATIENT
  Age: 72 Year
  Sex: Male

DRUGS (1)
  1. MEROPENEM AUROVITAS 1000 MG POWDERFORSOLUTIONFORINJECTION/INFUSION EFG [Suspect]
     Active Substance: MEROPENEM
     Indication: PSEUDOMONAS INFECTION
     Dosage: UNK (1G EVERY 8H)
     Route: 040
     Dates: start: 20200714, end: 20200716

REACTIONS (3)
  - Atrial tachycardia [Recovered/Resolved]
  - Erythema [Recovered/Resolved]
  - Dyspnoea [Recovered/Resolved]

NARRATIVE: CASE EVENT DATE: 20200716
